FAERS Safety Report 23664083 (Version 1)
Quarter: 2024Q1

REPORT INFORMATION
  Report Type: Spontaneous
  Country: US (occurrence: US)
  Receive Date: 20240322
  Receipt Date: 20240322
  Transmission Date: 20240409
  Serious: No
  Sender: FDA-Public Use
  Company Number: US-BIOVITRUM-2024-US-004376

PATIENT
  Age: 64 Year
  Sex: Female

DRUGS (1)
  1. VONJO [Suspect]
     Active Substance: PACRITINIB
     Indication: Myelofibrosis
     Dosage: 200 MG TWICE DAILY
     Route: 048
     Dates: start: 20240227

REACTIONS (2)
  - Dyspnoea exertional [Unknown]
  - Peripheral swelling [Unknown]
